FAERS Safety Report 8327439-6 (Version None)
Quarter: 2012Q2

REPORT INFORMATION
  Report Type: 
  Country: None (occurrence: None)
  Receive Date: 20120426
  Receipt Date: 20120410
  Transmission Date: 20120825
  Serious: Yes (Other)
  Sender: FDA-Public Use
  Company Number: 2011030275

PATIENT
  Sex: Male

DRUGS (29)
  1. VITAMIN D [Concomitant]
  2. HIZENTRA [Suspect]
     Indication: BLOOD IMMUNOGLOBULIN G DECREASED
     Dosage: SUBCUTANEOUS
     Route: 058
     Dates: start: 20120105
  3. HIZENTRA [Suspect]
     Indication: B-CELL LYMPHOMA
     Dosage: SUBCUTANEOUS
     Route: 058
     Dates: start: 20120105
  4. VITAMIN B6 [Concomitant]
  5. VITAMIN B12 [Concomitant]
  6. FISH OIL [Concomitant]
  7. HIZENTRA [Suspect]
     Indication: BLOOD IMMUNOGLOBULIN G DECREASED
     Dosage: SUBCUTANEOUS
     Route: 058
     Dates: start: 20120202
  8. HIZENTRA [Suspect]
     Indication: B-CELL LYMPHOMA
     Dosage: SUBCUTANEOUS
     Route: 058
     Dates: start: 20120202
  9. HIZENTRA [Suspect]
     Indication: B-CELL LYMPHOMA
     Dosage: SUBCUTANEOUS
     Route: 058
     Dates: start: 20120209
  10. HIZENTRA [Suspect]
     Indication: BLOOD IMMUNOGLOBULIN G DECREASED
     Dosage: SUBCUTANEOUS
     Route: 058
     Dates: start: 20120209
  11. HIZENTRA [Suspect]
     Indication: B-CELL LYMPHOMA
     Dosage: SUBCUTANEOUS
     Route: 058
     Dates: start: 20120216
  12. HIZENTRA [Suspect]
     Indication: BLOOD IMMUNOGLOBULIN G DECREASED
     Dosage: SUBCUTANEOUS
     Route: 058
     Dates: start: 20120216
  13. HIZENTRA [Suspect]
     Indication: B-CELL LYMPHOMA
     Dosage: 1X/WEEK SUBCUTANEOUS,
     Route: 058
     Dates: start: 20111019
  14. HIZENTRA [Suspect]
     Indication: BLOOD IMMUNOGLOBULIN G DECREASED
     Dosage: 1X/WEEK SUBCUTANEOUS,
     Route: 058
     Dates: start: 20111019
  15. HIZENTRA [Suspect]
     Indication: BLOOD IMMUNOGLOBULIN G DECREASED
     Dosage: SUBCUTANEOUS
     Route: 058
     Dates: start: 20120105
  16. HIZENTRA [Suspect]
     Indication: B-CELL LYMPHOMA
     Dosage: SUBCUTANEOUS
     Route: 058
     Dates: start: 20120105
  17. TAZTIA (DILTIAZEM HYDROCHLORIDE) [Concomitant]
  18. SYNTHROID [Concomitant]
  19. HIZENTRA [Suspect]
     Indication: BLOOD IMMUNOGLOBULIN G DECREASED
     Dosage: SUBCUTANEOUS
     Route: 058
     Dates: start: 20111025
  20. HIZENTRA [Suspect]
     Indication: B-CELL LYMPHOMA
     Dosage: SUBCUTANEOUS
     Route: 058
     Dates: start: 20111025
  21. HIZENTRA [Suspect]
     Indication: BLOOD IMMUNOGLOBULIN G DECREASED
     Dosage: SUBCUTANEOUS
     Route: 058
  22. HIZENTRA [Suspect]
     Indication: B-CELL LYMPHOMA
     Dosage: SUBCUTANEOUS
     Route: 058
  23. HIZENTRA [Suspect]
     Indication: B-CELL LYMPHOMA
     Dosage: SUBCUTANEOUS
     Route: 058
     Dates: start: 20120224
  24. HIZENTRA [Suspect]
     Indication: BLOOD IMMUNOGLOBULIN G DECREASED
     Dosage: SUBCUTANEOUS
     Route: 058
     Dates: start: 20120224
  25. HIZENTRA [Suspect]
     Indication: B-CELL LYMPHOMA
     Dosage: SUBCUTANEOUS
     Route: 058
     Dates: end: 20120315
  26. HIZENTRA [Suspect]
     Indication: BLOOD IMMUNOGLOBULIN G DECREASED
     Dosage: SUBCUTANEOUS
     Route: 058
     Dates: end: 20120315
  27. HIZENTRA [Suspect]
     Indication: B-CELL LYMPHOMA
     Dosage: SUBCUTANEOUS
     Route: 058
     Dates: start: 20120315, end: 20120315
  28. HIZENTRA [Suspect]
     Indication: BLOOD IMMUNOGLOBULIN G DECREASED
     Dosage: SUBCUTANEOUS
     Route: 058
     Dates: start: 20120315, end: 20120315
  29. AVELOX [Concomitant]

REACTIONS (24)
  - INFUSION SITE ERYTHEMA [None]
  - INFUSION SITE PRURITUS [None]
  - BLOOD PRESSURE INCREASED [None]
  - OROPHARYNGEAL PAIN [None]
  - COUGH [None]
  - INFUSION SITE RASH [None]
  - PRURITUS [None]
  - FEELING COLD [None]
  - RASH PRURITIC [None]
  - LETHARGY [None]
  - NAUSEA [None]
  - NASOPHARYNGITIS [None]
  - BODY TEMPERATURE INCREASED [None]
  - DECREASED APPETITE [None]
  - INFUSION SITE MASS [None]
  - CHILLS [None]
  - OFF LABEL USE [None]
  - DEPRESSED LEVEL OF CONSCIOUSNESS [None]
  - BLISTER [None]
  - DRY SKIN [None]
  - ASTHENIA [None]
  - FLUSHING [None]
  - RASH [None]
  - VIRAL INFECTION [None]
